FAERS Safety Report 7545438-9 (Version None)
Quarter: 2011Q2

REPORT INFORMATION
  Report Type: 
  Country: None (occurrence: None)
  Receive Date: 20110614
  Receipt Date: 20101228
  Transmission Date: 20111010
  Serious: Yes (Hospitalization, Other)
  Sender: FDA-Public Use
  Company Number: US-BAYER-2010-002749

PATIENT
  Sex: Female
  Weight: 72.562 kg

DRUGS (7)
  1. NEXIUM [Concomitant]
     Dosage: UNK
     Dates: start: 20070701
  2. HYDROCODONE BITARTRATE AND ACETAMINOPHEN [Concomitant]
     Dosage: UNK
     Dates: start: 20070101
  3. AZITHROMYCIN [Concomitant]
     Dosage: UNK
     Dates: start: 20060101, end: 20060101
  4. AZITHROMYCIN [Concomitant]
     Dosage: UNK
     Dates: start: 20070101, end: 20070101
  5. YAZ [Suspect]
     Dosage: UNK
     Route: 048
     Dates: start: 20050801, end: 20070701
  6. ORAL CONTRACEPTIVE NOS [Concomitant]
  7. ANTIHYPERTENSIVES [Concomitant]

REACTIONS (3)
  - GALLBLADDER DISORDER [None]
  - CHOLECYSTITIS [None]
  - CHOLELITHIASIS [None]
